FAERS Safety Report 8007342-1 (Version None)
Quarter: 2011Q4

REPORT INFORMATION
  Report Type: 
  Country: None (occurrence: None)
  Receive Date: 20111227
  Receipt Date: 20111215
  Transmission Date: 20120403
  Serious: Yes (Disabling)
  Sender: FDA-Public Use
  Company Number: CO-AMGEN-COLCT2011054752

PATIENT
  Age: 29 Year
  Sex: Female

DRUGS (5)
  1. POWER MAKER [Concomitant]
     Indication: IMMUNODEFICIENCY
     Dosage: 1 DF, 1X/DAY
     Dates: start: 20110701
  2. GENERAL NUTRIENTS [Concomitant]
     Indication: IMMUNODEFICIENCY
     Dosage: 1 DF, QD
     Dates: start: 20110701
  3. PREGABALIN [Concomitant]
     Indication: MYALGIA
     Dosage: 1 EVERY NIGHT, FOR 45 DAYS
     Route: 048
     Dates: start: 20110901
  4. ETANERCEPT [Suspect]
     Indication: OFF LABEL USE
     Dosage: 50 MG, QWK
     Route: 058
     Dates: start: 20110930
  5. AMINO ACIDS NOS [Concomitant]
     Indication: IMMUNODEFICIENCY
     Dosage: 1 DF, 1X/DAY
     Dates: start: 20110701

REACTIONS (4)
  - DIZZINESS [None]
  - BONE PAIN [None]
  - PAIN IN EXTREMITY [None]
  - INJECTION SITE PRURITUS [None]
